FAERS Safety Report 16920722 (Version 2)
Quarter: 2019Q4

REPORT INFORMATION
  Report Type: Report from Study
  Country: GB (occurrence: GB)
  Receive Date: 20191015
  Receipt Date: 20191025
  Transmission Date: 20200122
  Serious: Yes (Other)
  Sender: FDA-Public Use
  Company Number: PHHY2019GB091399

PATIENT
  Age: 66 Year
  Sex: Female

DRUGS (4)
  1. SANDOSTATIN LAR DEPOT [Suspect]
     Active Substance: OCTREOTIDE ACETATE
     Indication: NEUROENDOCRINE TUMOUR
     Dosage: 30 MG, Q4W (EVERY 28 DAYS)
     Route: 030
     Dates: start: 20181101
  2. SANDOSTATIN LAR DEPOT [Suspect]
     Active Substance: OCTREOTIDE ACETATE
     Dosage: 30 MG, Q4W (EVERY 28 DAYS)
     Route: 030
  3. SANDOSTATIN LAR DEPOT [Suspect]
     Active Substance: OCTREOTIDE ACETATE
     Dosage: 30 MG, Q4W (EVERY 28 DAYS)
     Route: 030
  4. SANDOSTATIN LAR DEPOT [Suspect]
     Active Substance: OCTREOTIDE ACETATE
     Dosage: 30 MG, Q4W (EVERY 28 DAYS)
     Route: 030

REACTIONS (12)
  - Malaise [Recovering/Resolving]
  - Pain [Recovering/Resolving]
  - Neuroendocrine tumour [Unknown]
  - Syncope [Unknown]
  - Abdominal pain [Recovering/Resolving]
  - Lethargy [Unknown]
  - Back pain [Recovering/Resolving]
  - Nausea [Unknown]
  - Asthenia [Recovering/Resolving]
  - Abdominal rigidity [Recovering/Resolving]
  - Fatigue [Unknown]
  - Malignant neoplasm progression [Unknown]
